FAERS Safety Report 5452604-5 (Version None)
Quarter: 2007Q3

REPORT INFORMATION
  Report Type: 
  Country: None (occurrence: None)
  Receive Date: 20070914
  Receipt Date: 20070905
  Transmission Date: 20080115
  Serious: Yes (Other)
  Sender: FDA-Public Use
  Company Number: PT-JNJFOC-20070703303

PATIENT
  Age: 50 Year
  Sex: Male

DRUGS (4)
  1. REMICADE [Suspect]
     Indication: PSORIASIS
     Route: 042
  2. ANTIDIABETIC [Concomitant]
     Indication: DIABETES MELLITUS
     Route: 048
  3. NSAID'S [Concomitant]
     Indication: PSORIASIS
     Route: 048
  4. NSAID'S [Concomitant]
     Indication: ARTHROPATHY
     Route: 048

REACTIONS (3)
  - DIABETES MELLITUS [None]
  - HYPOTENSION [None]
  - SYNCOPE [None]
